FAERS Safety Report 12398851 (Version 3)
Quarter: 2016Q2

REPORT INFORMATION
  Report Type: Spontaneous
  Country: TR (occurrence: TR)
  Receive Date: 20160524
  Receipt Date: 20160607
  Transmission Date: 20160815
  Serious: Yes (Other)
  Sender: FDA-Public Use
  Company Number: PHHY2016TR067514

PATIENT

DRUGS (1)
  1. ILARIS [Suspect]
     Active Substance: CANAKINUMAB
     Indication: PRODUCT USED FOR UNKNOWN INDICATION
     Dosage: 6 MG/KG, (3 MG/KG UP TO 6 MG/KG) EVERY 4-8 WEEKS
     Route: 058

REACTIONS (2)
  - Pneumonia [Unknown]
  - Drug administered to patient of inappropriate age [Unknown]
